FAERS Safety Report 13830011 (Version 4)
Quarter: 2018Q2

REPORT INFORMATION
  Report Type: Spontaneous
  Country: JP (occurrence: JP)
  Receive Date: 20170803
  Receipt Date: 20180427
  Transmission Date: 20180711
  Serious: Yes (Death, Hospitalization, Other)
  Sender: FDA-Public Use
  Company Number: JP-009507513-1707JPN001072J

PATIENT
  Age: 68 Year
  Sex: Female
  Weight: 52 kg

DRUGS (10)
  1. ROPION [Suspect]
     Active Substance: FLURBIPROFEN AXETIL
     Indication: ACRAL LENTIGINOUS MELANOMA
     Dosage: 50 MG, QD
     Route: 051
     Dates: start: 20170613, end: 20170614
  2. CELECOX [Concomitant]
     Active Substance: CELECOXIB
     Indication: ACRAL LENTIGINOUS MELANOMA
     Dosage: 100 MG, BID
     Route: 048
     Dates: start: 20170519, end: 20170614
  3. OXYCONTIN [Concomitant]
     Active Substance: OXYCODONE HYDROCHLORIDE
     Indication: ACRAL LENTIGINOUS MELANOMA
     Dosage: 5 MG, BID
     Route: 048
     Dates: start: 20170519, end: 20170609
  4. FENTANYL. [Concomitant]
     Active Substance: FENTANYL
     Indication: ACRAL LENTIGINOUS MELANOMA
     Dosage: 1 MG, QD
     Route: 051
     Dates: start: 20170614, end: 20170702
  5. ENSURE [Concomitant]
     Active Substance: AMINO ACIDS\DEXTROSE\ELECTROLYTES NOS\SOYBEAN OIL\VITAMINS
     Indication: ACRAL LENTIGINOUS MELANOMA
     Dosage: 250 ML, QD
     Route: 048
     Dates: start: 20170604, end: 20170704
  6. KEYTRUDA [Suspect]
     Active Substance: PEMBROLIZUMAB
     Indication: ACRAL LENTIGINOUS MELANOMA
     Dosage: 2 MG/KG, Q3W
     Route: 041
     Dates: start: 20170519, end: 20170607
  7. LYRICA [Concomitant]
     Active Substance: PREGABALIN
     Indication: ACRAL LENTIGINOUS MELANOMA
     Dosage: 75 MG, QD
     Route: 048
     Dates: start: 20170521, end: 20170610
  8. ZOLEDRONIC ACID HYDRATE [Concomitant]
     Active Substance: ZOLEDRONIC ACID
     Indication: ACRAL LENTIGINOUS MELANOMA
     Dosage: 4 MG, BID
     Route: 051
     Dates: start: 20170523, end: 20170708
  9. MAGMITT [Concomitant]
     Active Substance: MAGNESIUM OXIDE
     Indication: PROPHYLAXIS
     Dosage: 330 MG, TID
     Route: 048
     Dates: start: 20170519, end: 20170614
  10. RINDERON V [Concomitant]
     Active Substance: BETAMETHASONE VALERATE
     Indication: ACRAL LENTIGINOUS MELANOMA
     Dosage: 8 MG, QD
     Route: 051
     Dates: start: 20170614, end: 20170708

REACTIONS (2)
  - Hepatic function abnormal [Not Recovered/Not Resolved]
  - Malignant neoplasm progression [Fatal]

NARRATIVE: CASE EVENT DATE: 20170621
